FAERS Safety Report 13386796 (Version 1)
Quarter: 2017Q1

REPORT INFORMATION
  Report Type: Spontaneous
  Country: US (occurrence: US)
  Receive Date: 20170330
  Receipt Date: 20170330
  Transmission Date: 20170429
  Serious: No
  Sender: FDA-Public Use
  Company Number: US-PFIZER INC-2017137630

PATIENT
  Age: 49 Year
  Sex: Female
  Weight: 92.52 kg

DRUGS (1)
  1. HYDROCORTISONE. [Suspect]
     Active Substance: HYDROCORTISONE
     Indication: ARTHRALGIA
     Dosage: 7.5 MG, 3X/DAY
     Route: 048

REACTIONS (1)
  - Somnolence [Unknown]
